FAERS Safety Report 9611174 (Version 2)
Quarter: 2014Q2

REPORT INFORMATION
  Report Type: Report from Study
  Country: US (occurrence: US)
  Receive Date: 20131009
  Receipt Date: 20140424
  Transmission Date: 20141212
  Serious: Yes (Life-Threatening, Hospitalization, Other)
  Sender: FDA-Public Use
  Company Number: US-TEVA-436836USA

PATIENT
  Age: 8 Month
  Sex: Male

DRUGS (6)
  1. LESTAURTINIB [Suspect]
     Indication: ACUTE LYMPHOCYTIC LEUKAEMIA
     Dates: start: 20130712, end: 20131006
  2. CYCLOPHOSPHAMIDE [Suspect]
     Indication: ACUTE LYMPHOCYTIC LEUKAEMIA
     Dates: start: 20130712, end: 20131005
  3. DAUNORUBICIN [Suspect]
     Dates: start: 20130712, end: 20131002
  4. DEXAMETHASONE [Suspect]
     Dates: start: 20130712, end: 20131006
  5. PEG-L-ASPARAGINASE [Suspect]
     Dates: start: 20130712, end: 20131004
  6. VINCRISTINE [Suspect]
     Dates: start: 20130712, end: 20131001

REACTIONS (6)
  - Neutrophil count decreased [Recovering/Resolving]
  - Platelet count decreased [Recovering/Resolving]
  - Blood fibrinogen decreased [Recovering/Resolving]
  - Device related infection [Recovering/Resolving]
  - Anaemia [Recovering/Resolving]
  - White blood cell count decreased [Recovering/Resolving]
